FAERS Safety Report 4749977-5 (Version None)
Quarter: 2005Q3

REPORT INFORMATION
  Report Type: 
  Country: None (occurrence: None)
  Receive Date: 20050822
  Receipt Date: 20050324
  Transmission Date: 20060218
  Serious: Yes (Hospitalization, Disabling)
  Sender: FDA-Public Use
  Company Number: US-MERCK-0503USA04600

PATIENT
  Age: 66 Year
  Sex: Male
  Weight: 100 kg

DRUGS (18)
  1. AUGMENTIN '125' [Concomitant]
     Route: 065
  2. RHINOCORT [Concomitant]
     Route: 065
  3. VIOXX [Suspect]
     Indication: ARTHRITIS
     Route: 048
     Dates: start: 20000101, end: 20040501
  4. ARAVA [Concomitant]
     Indication: ARTHRITIS
     Route: 065
  5. LEVAQUIN [Concomitant]
     Route: 065
  6. DETROL [Concomitant]
     Route: 065
  7. DITROPAN [Concomitant]
     Route: 065
  8. DILANTIN [Concomitant]
     Indication: CONVULSION
     Route: 065
     Dates: start: 19750101
  9. VIAGRA [Concomitant]
     Route: 065
  10. PREDNISONE [Concomitant]
     Indication: ARTHRITIS
     Route: 065
  11. TESTODERM [Concomitant]
     Route: 065
  12. LIPITOR [Concomitant]
     Indication: BLOOD CHOLESTEROL INCREASED
     Route: 065
     Dates: start: 19980101, end: 20020101
  13. METHOTREXATE [Concomitant]
     Indication: ARTHRITIS
     Route: 065
     Dates: start: 19880101, end: 20040501
  14. FOLIC ACID [Concomitant]
     Indication: ARTHRITIS
     Route: 065
  15. CLEOCIN [Concomitant]
     Route: 065
  16. AVELOX [Concomitant]
     Route: 065
  17. CEPHALEXIN [Concomitant]
     Route: 065
  18. VIOXX [Suspect]
     Route: 048
     Dates: start: 19990101, end: 20000101

REACTIONS (5)
  - BONE DISORDER [None]
  - DEEP VEIN THROMBOSIS [None]
  - LIMB DISCOMFORT [None]
  - LOWER RESPIRATORY TRACT INFECTION [None]
  - MYOCARDIAL INFARCTION [None]
